FAERS Safety Report 23663800 (Version 1)
Quarter: 2024Q1

REPORT INFORMATION
  Report Type: Report from Study
  Country: AR (occurrence: AR)
  Receive Date: 20240322
  Receipt Date: 20240322
  Transmission Date: 20240409
  Serious: Yes (Hospitalization, Other)
  Sender: FDA-Public Use
  Company Number: AR-Merck Healthcare KGaA-2024014104

PATIENT
  Age: 12 Year
  Sex: Female

DRUGS (1)
  1. SAIZEN [Suspect]
     Active Substance: SOMATROPIN
     Indication: Growth hormone deficiency
     Route: 058
     Dates: start: 20210817

REACTIONS (5)
  - Vomiting [Not Recovered/Not Resolved]
  - Diabetes mellitus [Unknown]
  - Hyperglycaemia [Not Recovered/Not Resolved]
  - Thyroid disorder [Unknown]
  - Product administration interrupted [Unknown]

NARRATIVE: CASE EVENT DATE: 20240312
